FAERS Safety Report 5273786-4 (Version None)
Quarter: 2007Q1

REPORT INFORMATION
  Report Type: 
  Country: None (occurrence: None)
  Receive Date: 20070321
  Receipt Date: 20070321
  Transmission Date: 20070707
  Serious: Yes (Hospitalization)
  Sender: FDA-Public Use
  Company Number: None

PATIENT
  Age: 25 Year
  Sex: Female

DRUGS (1)
  1. PHENAZOPYRIDINE 200MG UNK [Suspect]
     Indication: CYSTITIS
     Dosage: 200MG   TID  PO
     Route: 048
     Dates: start: 20070123, end: 20070211

REACTIONS (1)
  - METHAEMOGLOBINAEMIA [None]
